FAERS Safety Report 7946762-8 (Version None)
Quarter: 2011Q4

REPORT INFORMATION
  Report Type: 
  Country: None (occurrence: None)
  Receive Date: 20111129
  Receipt Date: 20111122
  Transmission Date: 20120403
  Serious: Yes (Other)
  Sender: FDA-Public Use
  Company Number: GB-PFIZER INC-2011285454

PATIENT

DRUGS (1)
  1. SIROLIMUS [Suspect]

REACTIONS (1)
  - CONVULSION [None]
